FAERS Safety Report 4593975-1 (Version None)
Quarter: 2005Q1

REPORT INFORMATION
  Report Type: 
  Country: None (occurrence: None)
  Receive Date: 20050218
  Receipt Date: 20050207
  Transmission Date: 20050727
  Serious: Yes (Other)
  Sender: FDA-Public Use
  Company Number: 200510326GDS

PATIENT
  Age: 64 Year
  Sex: Female
  Weight: 54 kg

DRUGS (4)
  1. AVELOX [Suspect]
     Indication: BRONCHITIS ACUTE
     Dosage: 400 MG, TOTAL DAILY, ORAL
     Route: 048
  2. PREDNISONE [Concomitant]
  3. SPIRIVA ^PFIZER^ [Concomitant]
  4. SYMBICORT TURBUHALER ^DRACO^ [Concomitant]

REACTIONS (4)
  - DYSGEUSIA [None]
  - INSOMNIA [None]
  - IRRITABILITY [None]
  - VENTRICULAR ARRHYTHMIA [None]
